FAERS Safety Report 13707550 (Version 1)
Quarter: 2017Q2

REPORT INFORMATION
  Report Type: Report from Study
  Country: None (occurrence: US)
  Receive Date: 20170630
  Receipt Date: 20170630
  Transmission Date: 20170830
  Serious: Yes (Hospitalization)
  Sender: FDA-Public Use
  Company Number: US-IPSEN BIOPHARMACEUTICALS, INC.-2012-7718

PATIENT
  Age: 76 Year
  Sex: Female

DRUGS (1)
  1. SOMATULINE DEPOT [Suspect]
     Active Substance: LANREOTIDE ACETATE
     Indication: ACROMEGALY
     Dosage: 90 MG
     Route: 058
     Dates: start: 20121025

REACTIONS (3)
  - Flatulence [Not Recovered/Not Resolved]
  - Diarrhoea [None]
  - Gastrointestinal infection [Unknown]

NARRATIVE: CASE EVENT DATE: 201210
